FAERS Safety Report 11511066 (Version 1)
Quarter: 2015Q3

REPORT INFORMATION
  Report Type: Report from Study
  Country: CA (occurrence: CA)
  Receive Date: 20150915
  Receipt Date: 20150915
  Transmission Date: 20151125
  Serious: Yes (Hospitalization)
  Sender: FDA-Public Use
  Company Number: CA-JNJFOC-20150422915

PATIENT
  Age: 80 Year
  Sex: Female

DRUGS (1)
  1. IMBRUVICA [Suspect]
     Active Substance: IBRUTINIB
     Indication: CHRONIC LYMPHOCYTIC LEUKAEMIA
     Route: 048
     Dates: start: 20150421, end: 20150715

REACTIONS (14)
  - Peripheral swelling [Recovering/Resolving]
  - Somnolence [Recovering/Resolving]
  - Abdominal distension [Not Recovered/Not Resolved]
  - Paracentesis [Recovered/Resolved]
  - Confusional state [Not Recovered/Not Resolved]
  - Contusion [Recovered/Resolved]
  - Diarrhoea [Not Recovered/Not Resolved]
  - Drug administration error [Recovered/Resolved]
  - Gait disturbance [Not Recovered/Not Resolved]
  - Pain [Not Recovered/Not Resolved]
  - Balance disorder [Not Recovered/Not Resolved]
  - Bradyphrenia [Not Recovered/Not Resolved]
  - Fatigue [Not Recovered/Not Resolved]
  - Pain in extremity [Not Recovered/Not Resolved]

NARRATIVE: CASE EVENT DATE: 20150421
